FAERS Safety Report 4874682-4 (Version None)
Quarter: 2006Q1

REPORT INFORMATION
  Report Type: 
  Country: None (occurrence: None)
  Receive Date: 20060106
  Receipt Date: 20060103
  Transmission Date: 20060701
  Serious: Yes (Life-Threatening, Hospitalization, Other)
  Sender: FDA-Public Use
  Company Number: GB-MERCK-0601GBR00009

PATIENT
  Age: 91 Year
  Sex: Female
  Weight: 51 kg

DRUGS (4)
  1. FOSAMAX [Suspect]
     Indication: OSTEOPOROSIS
     Route: 048
     Dates: end: 20051219
  2. OMEPRAZOLE [Concomitant]
     Indication: DYSPEPSIA
     Route: 048
  3. HYPROMELLOSE [Concomitant]
     Indication: EYE PAIN
     Route: 061
  4. CINNARIZINE [Concomitant]
     Indication: VERTIGO
     Route: 048

REACTIONS (2)
  - OESOPHAGEAL DILATATION [None]
  - OESOPHAGEAL STENOSIS [None]
